FAERS Safety Report 21445513 (Version 1)
Quarter: 2022Q4

REPORT INFORMATION
  Report Type: Spontaneous
  Country: US (occurrence: US)
  Receive Date: 20221012
  Receipt Date: 20221012
  Transmission Date: 20230113
  Serious: No
  Sender: FDA-Public Use
  Company Number: US-VALIDUS PHARMACEUTICALS LLC-US-VDP-2021-004974

PATIENT

DRUGS (4)
  1. PENTOXIFYLLINE [Suspect]
     Active Substance: PENTOXIFYLLINE
     Indication: Product used for unknown indication
     Dosage: UNK
  2. GLIPIZIDE [Suspect]
     Active Substance: GLIPIZIDE
     Indication: Diabetes mellitus
     Dosage: 180 MG, QD
     Route: 065
     Dates: start: 20210729
  3. GLIPIZIDE [Suspect]
     Active Substance: GLIPIZIDE
     Dosage: 180 MG, QD
     Route: 065
     Dates: start: 20210310
  4. GLIPIZIDE [Suspect]
     Active Substance: GLIPIZIDE
     Dosage: 180 MG, QD
     Route: 065
     Dates: start: 20210810

REACTIONS (1)
  - Hypersensitivity [Unknown]
